FAERS Safety Report 4699303-5 (Version None)
Quarter: 2005Q2

REPORT INFORMATION
  Report Type: 
  Country: None (occurrence: None)
  Receive Date: 20050624
  Receipt Date: 20041102
  Transmission Date: 20051028
  Serious: Yes (Hospitalization)
  Sender: FDA-Public Use
  Company Number: FR-GLAXOSMITHKLINE-B0350518B

PATIENT
  Sex: Male

DRUGS (13)
  1. LAMICTAL [Suspect]
     Indication: EPILEPSY
     Dosage: 500MG PER DAY
     Dates: end: 20041101
  2. PENTOTHAL [Suspect]
     Indication: EPILEPSY
     Dates: start: 20041029
  3. IBUPROFEN [Concomitant]
     Route: 065
     Dates: start: 20041107, end: 20041109
  4. PHENOBARBITAL [Concomitant]
     Route: 065
     Dates: start: 20041105, end: 20041105
  5. CLAFORAN [Concomitant]
     Route: 065
  6. AMIKLIN [Concomitant]
     Route: 065
  7. AXEPIM [Concomitant]
     Route: 065
  8. VANCOCIN HCL [Concomitant]
     Route: 065
  9. VITAMIN K [Concomitant]
     Route: 065
  10. IRON [Concomitant]
     Route: 065
  11. UVESTEROL [Concomitant]
     Route: 065
  12. NEORECORMON [Concomitant]
     Route: 065
  13. TEGRETOL [Concomitant]
     Dates: start: 20041027

REACTIONS (9)
  - CIRCULATORY COLLAPSE [None]
  - DRUG EXPOSURE DURING PREGNANCY [None]
  - ELECTROENCEPHALOGRAM ABNORMAL [None]
  - HYPOTENSION [None]
  - NEONATAL APNOEIC ATTACK [None]
  - NEONATAL RESPIRATORY DISTRESS SYNDROME [None]
  - PREMATURE BABY [None]
  - RESPIRATORY DISTRESS [None]
  - SEDATION [None]
